FAERS Safety Report 25279002 (Version 1)
Quarter: 2025Q2

REPORT INFORMATION
  Report Type: Spontaneous
  Country: ES (occurrence: ES)
  Receive Date: 20250507
  Receipt Date: 20250507
  Transmission Date: 20250716
  Serious: Yes (Other)
  Sender: APELLIS PHARMACEUTICALS
  Company Number: ES-APELLIS PHARMACEUTICALS-APL-2024-004205

PATIENT

DRUGS (6)
  1. PEGCETACOPLAN [Suspect]
     Active Substance: PEGCETACOPLAN
     Indication: Paroxysmal nocturnal haemoglobinuria
     Dosage: 1080 MILLIGRAM, TWICE WEEKLY
     Route: 058
     Dates: start: 202212
  2. PEGCETACOPLAN [Suspect]
     Active Substance: PEGCETACOPLAN
     Route: 058
     Dates: start: 202306, end: 202306
  3. PEGCETACOPLAN [Suspect]
     Active Substance: PEGCETACOPLAN
     Route: 058
  4. CYCLOSPORINE [Concomitant]
     Active Substance: CYCLOSPORINE
     Indication: Aplastic anaemia
  5. OXYTOCIN [Concomitant]
     Active Substance: OXYTOCIN
     Indication: Aplastic anaemia
  6. ECULIZUMAB [Concomitant]
     Active Substance: ECULIZUMAB
     Indication: Haemolysis
     Dates: start: 2010

REACTIONS (6)
  - Benign prostatic hyperplasia [Unknown]
  - Off label use [Unknown]
  - Lumbar spinal stenosis [Unknown]
  - Urethral stenosis [Unknown]
  - Urethral stenosis [Unknown]
  - Haemoglobin decreased [Unknown]
